FAERS Safety Report 8434807-0 (Version None)
Quarter: 2012Q2

REPORT INFORMATION
  Report Type: 
  Country: None (occurrence: None)
  Receive Date: 20120614
  Receipt Date: 20120606
  Transmission Date: 20120825
  Serious: Yes (Other)
  Sender: FDA-Public Use
  Company Number: GB-JNJFOC-20120605427

PATIENT
  Sex: Male

DRUGS (1)
  1. STELARA [Suspect]
     Indication: PRODUCT USED FOR UNKNOWN INDICATION
     Dosage: LAST DOSE WAS ON 03-FEB-2012
     Route: 058

REACTIONS (4)
  - MYOCARDIAL INFARCTION [None]
  - LOWER RESPIRATORY TRACT INFECTION [None]
  - PNEUMOTHORAX [None]
  - HAEMOTHORAX [None]
